FAERS Safety Report 14280125 (Version 1)
Quarter: 2017Q4

REPORT INFORMATION
  Report Type: Spontaneous
  Country: US (occurrence: None)
  Receive Date: 20171212
  Receipt Date: 20171212
  Transmission Date: 20180321
  Serious: No
  Sender: FDA-Public Use
  Company Number: None

PATIENT
  Age: 67 Year
  Sex: Female

DRUGS (13)
  1. INSULIN SYRG MIS [Concomitant]
  2. CLONAZEPAM. [Concomitant]
     Active Substance: CLONAZEPAM
  3. MORPHINE SUL [Concomitant]
     Active Substance: MORPHINE SULFATE
  4. LEVOTHYROXIN [Concomitant]
     Active Substance: LEVOTHYROXINE
  5. AMITRIPTYLIN [Concomitant]
     Active Substance: AMITRIPTYLINE
  6. ONDANSETRON [Concomitant]
     Active Substance: ONDANSETRON
  7. OXYCODONE [Concomitant]
     Active Substance: OXYCODONE
  8. TASIGNA [Suspect]
     Active Substance: NILOTINIB
     Indication: CHRONIC LEUKAEMIA
     Dosage: 200MG CAPSULES 2 CAPSULES BID ORAL
     Route: 048
     Dates: start: 20090611
  9. PHENYTOIN EX [Concomitant]
  10. ALPRAZOLAM. [Concomitant]
     Active Substance: ALPRAZOLAM
  11. PAROXETINE. [Concomitant]
     Active Substance: PAROXETINE
  12. DEXILANT [Concomitant]
     Active Substance: DEXLANSOPRAZOLE
  13. LORAZEPAM. [Concomitant]
     Active Substance: LORAZEPAM

REACTIONS (2)
  - Therapy cessation [None]
  - Neck surgery [None]
